FAERS Safety Report 9709933 (Version 4)
Quarter: 2014Q1

REPORT INFORMATION
  Report Type: Spontaneous
  Country: US (occurrence: US)
  Receive Date: 20131126
  Receipt Date: 20140117
  Transmission Date: 20141002
  Serious: Yes (Life-Threatening, Hospitalization, Disabling)
  Sender: FDA-Public Use
  Company Number: US-JNJFOC-20131114871

PATIENT
  Age: 88 Year
  Sex: Female
  Weight: 58.51 kg

DRUGS (5)
  1. XARELTO [Suspect]
     Indication: CEREBROVASCULAR ACCIDENT PROPHYLAXIS
     Route: 048
     Dates: start: 20130127, end: 20130521
  2. XARELTO [Suspect]
     Indication: ATRIAL FIBRILLATION
     Route: 048
     Dates: start: 20130127, end: 20130521
  3. AMIODARONE [Concomitant]
     Indication: ATRIAL FIBRILLATION
     Route: 065
  4. INDERAL [Concomitant]
     Indication: ESSENTIAL TREMOR
     Route: 065
  5. DIOVAN [Concomitant]
     Route: 065

REACTIONS (1)
  - Haemorrhagic stroke [Recovered/Resolved with Sequelae]
